FAERS Safety Report 24979009 (Version 2)
Quarter: 2025Q3

REPORT INFORMATION
  Report Type: Spontaneous
  Country: US (occurrence: None)
  Receive Date: 20250218
  Receipt Date: 20250810
  Transmission Date: 20251021
  Serious: No
  Sender: ALEXION PHARMACEUTICALS
  Company Number: US-AstraZeneca-2004UW18518

PATIENT
  Age: 66 Year
  Sex: Female
  Weight: 45.5 kg

DRUGS (2)
  1. NEXIUM [Suspect]
     Active Substance: ESOMEPRAZOLE MAGNESIUM
     Indication: Dysphagia
     Dosage: 40 MILLIGRAM, BID
     Dates: start: 200408
  2. NEXIUM [Suspect]
     Active Substance: ESOMEPRAZOLE MAGNESIUM
     Indication: Oropharyngeal pain

REACTIONS (2)
  - Tinnitus [Unknown]
  - Diarrhoea [Unknown]
